FAERS Safety Report 10127008 (Version 3)
Quarter: 2014Q2

REPORT INFORMATION
  Report Type: Report from Study
  Country: GB (occurrence: GB)
  Receive Date: 20140428
  Receipt Date: 20140623
  Transmission Date: 20141212
  Serious: Yes (Hospitalization)
  Sender: FDA-Public Use
  Company Number: GB-ROCHE-1386402

PATIENT
  Age: 68 Year
  Sex: Male
  Weight: 115 kg

DRUGS (7)
  1. RANIBIZUMAB [Suspect]
     Indication: DIABETIC RETINAL OEDEMA
     Route: 050
     Dates: start: 20131118
  2. RANIBIZUMAB [Suspect]
     Route: 050
     Dates: start: 20140404
  3. METFORMIN [Concomitant]
     Route: 065
     Dates: start: 20000606
  4. GLICLAZIDE [Concomitant]
     Route: 065
     Dates: end: 20110330
  5. PIOGLITAZONE [Concomitant]
     Route: 065
     Dates: start: 20070911
  6. RAMIPRIL [Concomitant]
     Route: 065
     Dates: start: 20121123
  7. SIMVASTATIN [Concomitant]
     Route: 065
     Dates: start: 20041105

REACTIONS (2)
  - Cerebrovascular accident [Recovering/Resolving]
  - Arteriosclerosis [Unknown]
